FAERS Safety Report 6596302-3 (Version None)
Quarter: 2010Q1

REPORT INFORMATION
  Report Type: 
  Country: None (occurrence: None)
  Receive Date: 20100223
  Receipt Date: 20100212
  Transmission Date: 20100710
  Serious: Yes (Other)
  Sender: FDA-Public Use
  Company Number: JP-PFIZER INC-2010019794

PATIENT
  Sex: Male

DRUGS (1)
  1. ALDACTONE [Suspect]
     Route: 048

REACTIONS (1)
  - HAEMATURIA [None]
